FAERS Safety Report 5195877-9 (Version None)
Quarter: 2007Q1

REPORT INFORMATION
  Report Type: 
  Country: None (occurrence: None)
  Receive Date: 20070102
  Receipt Date: 20061222
  Transmission Date: 20070707
  Serious: Yes (Life-Threatening)
  Sender: FDA-Public Use
  Company Number: JP-JPN-A200605179

PATIENT
  Age: 94 Year
  Sex: Female
  Weight: 43 kg

DRUGS (8)
  1. ZOVIRAX [Suspect]
     Indication: HERPES ZOSTER
     Dosage: 250MG TWICE PER DAY
     Route: 042
     Dates: start: 20061127, end: 20061202
  2. MICARDIS [Concomitant]
     Dosage: 20MG PER DAY
     Route: 048
     Dates: start: 20061003
  3. ARTIST [Concomitant]
     Dosage: 1.25MG PER DAY
     Route: 048
     Dates: start: 20061004
  4. OPALMON [Concomitant]
     Dosage: 45MG PER DAY
     Route: 048
     Dates: start: 20061006
  5. NEUQUINON [Concomitant]
     Dosage: 30MG PER DAY
     Route: 048
     Dates: start: 20061003
  6. PROMAC [Concomitant]
     Dosage: 150MG PER DAY
     Route: 048
     Dates: start: 20061206
  7. MAGMITT [Concomitant]
     Dosage: 660MG PER DAY
     Route: 048
     Dates: start: 20061030
  8. ITRIZOLE [Concomitant]
     Dosage: 400MG PER DAY
     Route: 048
     Dates: start: 20061017, end: 20061123

REACTIONS (15)
  - ARRHYTHMIA [None]
  - BRONCHOSTENOSIS [None]
  - CARDIAC FAILURE CONGESTIVE [None]
  - CREPITATIONS [None]
  - DECREASED APPETITE [None]
  - DILATATION ATRIAL [None]
  - DYSPNOEA EXERTIONAL [None]
  - FACE OEDEMA [None]
  - MICTURITION FREQUENCY DECREASED [None]
  - OXYGEN SATURATION DECREASED [None]
  - PLEURAL EFFUSION [None]
  - PULMONARY OEDEMA [None]
  - RALES [None]
  - RENAL FAILURE ACUTE [None]
  - WHEEZING [None]
